FAERS Safety Report 4709986-9 (Version None)
Quarter: 2005Q3

REPORT INFORMATION
  Report Type: 
  Country: None (occurrence: None)
  Receive Date: 20050708
  Receipt Date: 20050705
  Transmission Date: 20060218
  Serious: Yes (Death, Life-Threatening)
  Sender: FDA-Public Use
  Company Number: 200511403DE

PATIENT
  Age: 75 Year
  Sex: Female

DRUGS (4)
  1. CLEXANE [Suspect]
     Indication: MESENTERIC VEIN THROMBOSIS
     Route: 058
     Dates: end: 20050601
  2. MARCUMAR [Suspect]
     Indication: MESENTERIC VEIN THROMBOSIS
     Dosage: DOSE: 1/2; DOSE UNIT: UNITS
     Route: 048
     Dates: start: 20050617, end: 20050618
  3. ISOPTIN [Concomitant]
     Indication: ATRIAL FIBRILLATION
     Dosage: DOSE: 1.5-1.5-1.5; DOSE UNIT: UNITS
     Route: 048
  4. CALCIUM GLUCONATE [Concomitant]
     Indication: HYPOCALCAEMIA

REACTIONS (7)
  - ARRHYTHMIA [None]
  - CARDIOVASCULAR DISORDER [None]
  - FALL [None]
  - MULTI-ORGAN FAILURE [None]
  - RETROPERITONEAL HAEMATOMA [None]
  - RETROPERITONEAL HAEMORRHAGE [None]
  - RHABDOMYOLYSIS [None]
